FAERS Safety Report 9058214 (Version 2)
Quarter: 2013Q2

REPORT INFORMATION
  Report Type: Spontaneous
  Country: US (occurrence: US)
  Receive Date: 20130211
  Receipt Date: 20130516
  Transmission Date: 20140414
  Serious: No
  Sender: FDA-Public Use
  Company Number: US-BIOGENIDEC-2013BI011465

PATIENT
  Age: 49 Year
  Sex: Female

DRUGS (2)
  1. TYSABRI [Suspect]
     Indication: MULTIPLE SCLEROSIS
     Route: 042
     Dates: start: 20120509
  2. AMPYRA [Concomitant]
     Indication: MULTIPLE SCLEROSIS

REACTIONS (6)
  - Central nervous system lesion [Unknown]
  - Feeling abnormal [Unknown]
  - Multiple allergies [Not Recovered/Not Resolved]
  - Loss of control of legs [Unknown]
  - Bronchitis [Unknown]
  - Fatigue [Unknown]
